FAERS Safety Report 7177610-4 (Version None)
Quarter: 2010Q4

REPORT INFORMATION
  Report Type: 
  Country: None (occurrence: None)
  Receive Date: 20101123
  Receipt Date: 20100728
  Transmission Date: 20110411
  Serious: No
  Sender: FDA-Public Use
  Company Number: 016535

PATIENT
  Sex: Female
  Weight: 88 kg

DRUGS (8)
  1. CIMZIA [Suspect]
     Indication: CROHN'S DISEASE
     Dosage: (400 MG 1X/MONTH SUBCUTANEOUS)
     Route: 058
     Dates: start: 20100501
  2. MERCAPTOPURINE [Concomitant]
  3. POTASSIUM CHLORIDE [Concomitant]
  4. IMODIUM /00384302/ [Concomitant]
  5. MAGNESIUM OXIDE [Concomitant]
  6. FERROUS SULFATE [Concomitant]
  7. VITAMIN D [Concomitant]
  8. VITAMIN B NOS [Concomitant]

REACTIONS (1)
  - DRUG INEFFECTIVE [None]
